FAERS Safety Report 17980028 (Version 1)
Quarter: 2020Q3

REPORT INFORMATION
  Report Type: Spontaneous
  Country: FR (occurrence: FR)
  Receive Date: 20200703
  Receipt Date: 20200703
  Transmission Date: 20201103
  Serious: Yes (Death, Hospitalization, Other)
  Sender: FDA-Public Use
  Company Number: FR-GLAXOSMITHKLINE-FR2019EME240509

PATIENT
  Age: 68 Year
  Sex: Female

DRUGS (22)
  1. ACITRETIN. [Suspect]
     Active Substance: ACITRETIN
     Dosage: 10 MG, QD
     Route: 048
     Dates: start: 20170728, end: 20180126
  2. REMICADE [Suspect]
     Active Substance: INFLIXIMAB
     Dosage: 415 MG, Z, EVERY 8 WEEKS
     Route: 042
     Dates: start: 20160202, end: 20160325
  3. REMICADE [Suspect]
     Active Substance: INFLIXIMAB
     Indication: PRODUCT USED FOR UNKNOWN INDICATION
     Dosage: 420 MG, Z, EVERY 4 WEEK
     Route: 042
     Dates: start: 20150618, end: 20150716
  4. DERMOVAL [Concomitant]
     Indication: PRODUCT USED FOR UNKNOWN INDICATION
     Dosage: UNK
     Dates: start: 20150408
  5. KARDEGIC [Concomitant]
     Active Substance: ASPIRIN DL-LYSINE
     Indication: PRODUCT USED FOR UNKNOWN INDICATION
     Dosage: 75 MG, QD
     Route: 048
     Dates: start: 20130620
  6. ACITRETIN. [Suspect]
     Active Substance: ACITRETIN
     Dosage: 20 MG, QD
     Route: 048
     Dates: start: 20180126, end: 20180323
  7. REMICADE [Suspect]
     Active Substance: INFLIXIMAB
     Dosage: 400 MG, Z, EVERY 2 WEEKS
     Route: 042
     Dates: start: 20150605, end: 20150718
  8. ENBREL [Suspect]
     Active Substance: ETANERCEPT
     Indication: PSORIASIS
     Dosage: 50 MG, Z, WEEKLY
     Route: 058
     Dates: start: 20141002, end: 20150323
  9. DAIVOBET [Concomitant]
     Active Substance: BETAMETHASONE DIPROPIONATE\CALCIPOTRIENE
     Indication: PRODUCT USED FOR UNKNOWN INDICATION
     Dosage: UNK
     Dates: start: 20151126
  10. REMICADE [Suspect]
     Active Substance: INFLIXIMAB
     Dosage: 420 MG, Z, EVERY 8 WEEK
     Route: 042
     Dates: start: 20150716, end: 20151126
  11. STELARA [Suspect]
     Active Substance: USTEKINUMAB
     Dosage: 90 MG, Z, CYCLIC EVERY 12 WEEKS
     Route: 058
     Dates: start: 20170828, end: 20171027
  12. STELARA [Suspect]
     Active Substance: USTEKINUMAB
     Indication: PRODUCT USED FOR UNKNOWN INDICATION
     Dosage: 90 MG, Z, EVERY 10 WEEKS
     Route: 058
     Dates: start: 20171027, end: 20180126
  13. NERISONE [Concomitant]
     Active Substance: DIFLUCORTOLONE VALERATE
     Indication: PRODUCT USED FOR UNKNOWN INDICATION
     Dosage: UNK
     Dates: start: 20180323, end: 20180423
  14. METHOTREXATE SODIUM. [Suspect]
     Active Substance: METHOTREXATE SODIUM
     Indication: PRODUCT USED FOR UNKNOWN INDICATION
     Dosage: UNK
     Dates: start: 20180717, end: 20181009
  15. CYCLOSPORINE. [Suspect]
     Active Substance: CYCLOSPORINE
     Indication: PRODUCT USED FOR UNKNOWN INDICATION
     Dosage: 15 MG, WEEKLY
     Route: 058
     Dates: start: 20180323
  16. STELARA [Suspect]
     Active Substance: USTEKINUMAB
     Dosage: 90 MG, Z, CYCLIC EVERY 4 WEEKS
     Route: 058
     Dates: start: 20170728, end: 20170828
  17. LOCAPRED [Concomitant]
     Active Substance: DESONIDE
     Indication: PRODUCT USED FOR UNKNOWN INDICATION
     Dosage: UNK
     Dates: start: 20180323
  18. GLYCEROTONE [Concomitant]
     Indication: PRODUCT USED FOR UNKNOWN INDICATION
     Dosage: UNK
     Dates: start: 20180323
  19. STRESAM [Concomitant]
     Active Substance: ETIFOXINE
     Indication: PRODUCT USED FOR UNKNOWN INDICATION
     Dosage: UNK
     Dates: start: 20180123
  20. FLECAINE [Concomitant]
     Active Substance: FLECAINIDE
     Indication: PRODUCT USED FOR UNKNOWN INDICATION
     Dosage: UNK
     Dates: start: 20170728
  21. ACITRETIN. [Suspect]
     Active Substance: ACITRETIN
     Indication: PRODUCT USED FOR UNKNOWN INDICATION
     Dosage: 25 MG, QD
     Route: 048
     Dates: start: 20160704, end: 20160909
  22. STELARA [Suspect]
     Active Substance: USTEKINUMAB
     Dosage: 90 MG, Z, CYCLIC EVERY 8 WEEKS
     Route: 058
     Dates: start: 20180126, end: 20180323

REACTIONS (7)
  - Tooth abscess [Unknown]
  - Cutaneous T-cell lymphoma [Fatal]
  - Dermatitis exfoliative generalised [Fatal]
  - Rectal haemorrhage [Recovered/Resolved with Sequelae]
  - Pruritus [Unknown]
  - Drug ineffective [Unknown]
  - Psoriasis [Fatal]

NARRATIVE: CASE EVENT DATE: 20150330
